FAERS Safety Report 8607759-8 (Version None)
Quarter: 2012Q3

REPORT INFORMATION
  Report Type: 
  Country: None (occurrence: None)
  Receive Date: 20120821
  Receipt Date: 20120816
  Transmission Date: 20120928
  Serious: Yes (Other)
  Sender: FDA-Public Use
  Company Number: PHHY2012BR071222

PATIENT
  Age: 85 Year
  Sex: Female

DRUGS (2)
  1. EXELON [Suspect]
     Dosage: 4.6 MG/24 HOURS (9 MG/5CM2)
     Route: 062
  2. EXELON [Suspect]
     Indication: PARKINSON'S DISEASE
     Dosage: 4.6 MG/24 HOURS (9 MG/5CM2)
     Route: 062

REACTIONS (3)
  - DEMENTIA ALZHEIMER'S TYPE [None]
  - AGITATION [None]
  - ANXIETY [None]
